FAERS Safety Report 23750200 (Version 1)
Quarter: 2024Q2

REPORT INFORMATION
  Report Type: Spontaneous
  Country: US (occurrence: US)
  Receive Date: 20240417
  Receipt Date: 20240417
  Transmission Date: 20240716
  Serious: Yes (Death, Hospitalization, Other)
  Sender: FDA-Public Use
  Company Number: US-LUPIN PHARMACEUTICALS INC.-2024-03048

PATIENT
  Age: 29 Year
  Sex: Male

DRUGS (4)
  1. CARVEDILOL [Suspect]
     Active Substance: CARVEDILOL
     Indication: Product used for unknown indication
     Dosage: UNK
     Route: 065
  2. CALCIUM [Suspect]
     Active Substance: CALCIUM
     Indication: Overdose
     Dosage: UNK
     Route: 065
  3. COLCHICINE [Suspect]
     Active Substance: COLCHICINE
     Indication: Product used for unknown indication
     Dosage: UNK
     Route: 065
  4. INSULIN NOS [Suspect]
     Active Substance: INSULIN NOS
     Indication: Overdose
     Dosage: UNK (RECEIVED HIGH DOSE)
     Route: 065

REACTIONS (11)
  - Right ventricular failure [Fatal]
  - Cardiogenic shock [Fatal]
  - Respiratory gas exchange disorder [Fatal]
  - Renal failure [Fatal]
  - Hepatic failure [Fatal]
  - Metabolic acidosis [Fatal]
  - Acute respiratory distress syndrome [Fatal]
  - Respiratory acidosis [Fatal]
  - Intentional overdose [Fatal]
  - Drug ineffective for unapproved indication [Fatal]
  - Off label use [Unknown]
